FAERS Safety Report 22181055 (Version 1)
Quarter: 2023Q2

REPORT INFORMATION
  Report Type: Spontaneous
  Country: NP (occurrence: NP)
  Receive Date: 20230406
  Receipt Date: 20230406
  Transmission Date: 20230722
  Serious: Yes (Hospitalization, Other)
  Sender: FDA-Public Use
  Company Number: NP-drreddys-LIT/NEP/23/0163170

PATIENT
  Age: 30 Year
  Sex: Female

DRUGS (3)
  1. AMLODIPINE [Suspect]
     Active Substance: AMLODIPINE BESYLATE
     Indication: Hypertension
     Route: 048
  2. AMLODIPINE [Suspect]
     Active Substance: AMLODIPINE BESYLATE
     Route: 048
  3. METHYLDOPA [Suspect]
     Active Substance: METHYLDOPA
     Indication: Hypertension

REACTIONS (12)
  - Phaeochromocytoma [Recovering/Resolving]
  - Delayed delivery [Unknown]
  - Left ventricular dysfunction [Unknown]
  - Pericardial effusion [Unknown]
  - Aortic valve incompetence [Unknown]
  - Blood potassium decreased [Unknown]
  - Leukocytosis [Unknown]
  - Hepatomegaly [Unknown]
  - Ascites [Unknown]
  - Pleural effusion [Unknown]
  - Maternal exposure during pregnancy [Unknown]
  - Normal newborn [Unknown]
